FAERS Safety Report 9785248 (Version 2)
Quarter: 2014Q1

REPORT INFORMATION
  Report Type: Spontaneous
  Country: US (occurrence: None)
  Receive Date: 20131224
  Receipt Date: 20140204
  Transmission Date: 20141002
  Serious: Yes (Other)
  Sender: FDA-Public Use
  Company Number: 20130717

PATIENT
  Age: 11 Month
  Sex: Male

DRUGS (2)
  1. LIDOCAINE HCL [Suspect]
     Indication: PRODUCT USED FOR UNKNOWN INDICATION
     Dosage: 1% LIDOCAINE 10ML (10.1 MG/KG)
     Route: 028
  2. CEFTRIAXONE [Concomitant]

REACTIONS (4)
  - Accidental overdose [None]
  - Incorrect route of drug administration [None]
  - Toxicity to various agents [None]
  - Grand mal convulsion [None]
